FAERS Safety Report 6170075-0 (Version None)
Quarter: 2009Q2

REPORT INFORMATION
  Report Type: 
  Country: None (occurrence: None)
  Receive Date: 20090428
  Receipt Date: 20090421
  Transmission Date: 20091009
  Serious: Yes (Other)
  Sender: FDA-Public Use
  Company Number: A0779677A

PATIENT
  Age: 79 Year
  Sex: Female

DRUGS (4)
  1. FLOVENT [Suspect]
     Indication: CHRONIC OBSTRUCTIVE PULMONARY DISEASE
     Dosage: 4PUFF TWICE PER DAY
     Route: 055
     Dates: start: 20090410
  2. DOXYCYCLINE [Suspect]
     Indication: DRUG USE FOR UNKNOWN INDICATION
  3. CARDIZEM [Concomitant]
  4. ATIVAN [Concomitant]

REACTIONS (10)
  - CANDIDIASIS [None]
  - DRUG INEFFECTIVE [None]
  - DRY MOUTH [None]
  - DYSPHAGIA [None]
  - HAEMOPTYSIS [None]
  - LUNG INFECTION [None]
  - MUSCULAR WEAKNESS [None]
  - RESPIRATORY DISORDER [None]
  - THIRST [None]
  - VISUAL ACUITY REDUCED [None]
